FAERS Safety Report 9271536 (Version 1)
Quarter: 2013Q2

REPORT INFORMATION
  Report Type: Spontaneous
  Country: FR (occurrence: FR)
  Receive Date: 20130506
  Receipt Date: 20130506
  Transmission Date: 20140414
  Serious: Yes (Other)
  Sender: FDA-Public Use
  Company Number: FR-JNJFOC-20130501825

PATIENT
  Age: 45 Year
  Sex: Male

DRUGS (1)
  1. REMICADE [Suspect]
     Indication: PSORIATIC ARTHROPATHY
     Dosage: DISCONTINUED AFTER 43 TH INFUSION
     Route: 042
     Dates: start: 2002

REACTIONS (1)
  - Myocardial infarction [Unknown]
